FAERS Safety Report 7921501-5 (Version None)
Quarter: 2011Q4

REPORT INFORMATION
  Report Type: 
  Country: None (occurrence: None)
  Receive Date: 20111117
  Receipt Date: 20111115
  Transmission Date: 20120403
  Serious: Yes (Hospitalization)
  Sender: FDA-Public Use
  Company Number: TR-ABBOTT-11P-161-0874316-00

PATIENT
  Sex: Female

DRUGS (2)
  1. IMURAN [Concomitant]
     Indication: PRODUCT USED FOR UNKNOWN INDICATION
     Dosage: ONCE
     Route: 048
  2. HUMIRA [Suspect]
     Indication: CROHN'S DISEASE
     Route: 058
     Dates: start: 20110920

REACTIONS (3)
  - DIARRHOEA [None]
  - PYREXIA [None]
  - ABDOMINAL PAIN [None]
